FAERS Safety Report 9399004 (Version 1)
Quarter: 2013Q3

REPORT INFORMATION
  Report Type: Spontaneous
  Country: US (occurrence: US)
  Receive Date: 20130714
  Receipt Date: 20130714
  Transmission Date: 20140515
  Serious: Yes (Hospitalization)
  Sender: FDA-Public Use
  Company Number: US-MYLANLABS-2013S1014739

PATIENT
  Age: 65 Year
  Sex: Female
  Weight: 77.57 kg

DRUGS (15)
  1. FUROSEMIDE TABLETS, USP [Suspect]
     Indication: DIURETIC THERAPY
     Route: 048
  2. METOPROLOL TARTRATE TABLETS, USP [Suspect]
     Route: 048
  3. TOVIAZ [Suspect]
     Indication: URINARY INCONTINENCE
     Route: 048
  4. LISINOPRIL [Concomitant]
     Indication: BLOOD PRESSURE INCREASED
  5. REQUIP [Concomitant]
     Indication: RESTLESS LEGS SYNDROME
  6. SERTRALINE HYDROCHLORIDE [Concomitant]
     Indication: DEPRESSION
  7. OMEPRAZOLE [Concomitant]
     Indication: GASTROOESOPHAGEAL REFLUX DISEASE
  8. LYRICA [Concomitant]
     Indication: NEUROPATHY PERIPHERAL
  9. ZOLPIDEM [Concomitant]
     Indication: INSOMNIA
  10. HYDROCODONE/HOMATROPINE [Concomitant]
     Indication: COUGH
  11. AMPHETAMINE [Concomitant]
     Indication: DISTURBANCE IN ATTENTION
  12. MIRTAZAPINE [Concomitant]
     Indication: INSOMNIA
  13. PRADAXA [Concomitant]
     Indication: ANTIPLATELET THERAPY
  14. CLONAZEPAM [Concomitant]
     Indication: INSOMNIA
  15. IPRATROPIUM [Concomitant]
     Route: 045

REACTIONS (3)
  - Drug ineffective [Recovered/Resolved]
  - Fluid retention [Recovered/Resolved]
  - Cardiac failure [Recovered/Resolved]
